FAERS Safety Report 19483927 (Version 4)
Quarter: 2021Q4

REPORT INFORMATION
  Report Type: Report from Study
  Country: US (occurrence: US)
  Receive Date: 20210701
  Receipt Date: 20211206
  Transmission Date: 20220303
  Serious: Yes (Hospitalization)
  Sender: FDA-Public Use
  Company Number: US-TAKEDA-2021TUS031839

PATIENT
  Sex: Female
  Weight: 73 kg

DRUGS (25)
  1. HUMAN IMMUNOGLOBULIN G [Suspect]
     Active Substance: HUMAN IMMUNOGLOBULIN G
     Indication: Myasthenia gravis
     Dosage: 400 MILLIGRAM/KILOGRAM, QD
     Route: 042
     Dates: start: 20210106
  2. HUMAN IMMUNOGLOBULIN G [Suspect]
     Active Substance: HUMAN IMMUNOGLOBULIN G
     Dosage: 30 GRAM, Q4WEEKS
     Route: 042
     Dates: start: 20210108
  3. HUMAN IMMUNOGLOBULIN G [Suspect]
     Active Substance: HUMAN IMMUNOGLOBULIN G
     Dosage: 2000 MILLIGRAM/KILOGRAM
     Route: 042
     Dates: start: 20210108
  4. HUMAN IMMUNOGLOBULIN G [Suspect]
     Active Substance: HUMAN IMMUNOGLOBULIN G
     Dosage: 400 MILLIGRAM/KILOGRAM
     Route: 042
     Dates: start: 20210108
  5. ACETAMINOPHEN [Concomitant]
     Active Substance: ACETAMINOPHEN
  6. DIPHENHYDRAMINE [Concomitant]
     Active Substance: DIPHENHYDRAMINE
  7. HEPARIN [Concomitant]
     Active Substance: HEPARIN SODIUM
  8. SODIUM CHLORIDE [Concomitant]
     Active Substance: SODIUM CHLORIDE
  9. EPINEPHRINE [Concomitant]
     Active Substance: EPINEPHRINE
  10. Lmx [Concomitant]
  11. JANUVIA [Concomitant]
     Active Substance: SITAGLIPTIN PHOSPHATE
  12. ALLOPURINOL [Concomitant]
     Active Substance: ALLOPURINOL
  13. COENZYME Q10 [Concomitant]
     Active Substance: DIETARY SUPPLEMENT\UBIDECARENONE
  14. CALCIUM\VITAMIN D [Concomitant]
     Active Substance: CALCIUM\VITAMIN D
  15. VITAMIN D3 [Concomitant]
     Active Substance: CHOLECALCIFEROL
  16. LOSARTAN [Concomitant]
     Active Substance: LOSARTAN
  17. POTASSIUM [Concomitant]
     Active Substance: POTASSIUM
  18. OMEGA-3 ACIDS [Concomitant]
     Active Substance: OMEGA-3 FATTY ACIDS
  19. ZETIA [Concomitant]
     Active Substance: EZETIMIBE
  20. PYRIDOSTIGMINE BROMIDE [Concomitant]
     Active Substance: PYRIDOSTIGMINE BROMIDE
  21. LIDOCAINE [Concomitant]
     Active Substance: LIDOCAINE
     Route: 065
  22. CHOLEST CARE [Concomitant]
     Route: 065
  23. GABAPENTIN [Concomitant]
     Active Substance: GABAPENTIN
  24. SODIUM CHLORIDE [Concomitant]
     Active Substance: SODIUM CHLORIDE
  25. HYDROCORTISONE [Concomitant]
     Active Substance: HYDROCORTISONE

REACTIONS (12)
  - Infusion site rash [Unknown]
  - Infusion site swelling [Unknown]
  - Infusion related reaction [Unknown]
  - Bladder disorder [Unknown]
  - Urinary incontinence [Unknown]
  - Rash macular [Unknown]
  - Pruritus [Unknown]
  - Swelling [Unknown]
  - Pain [Unknown]
  - Urinary tract infection [Unknown]
  - Off label use [Unknown]
  - Mobility decreased [Unknown]
